FAERS Safety Report 12453789 (Version 4)
Quarter: 2016Q4

REPORT INFORMATION
  Report Type: Spontaneous
  Country: US (occurrence: US)
  Receive Date: 20160609
  Receipt Date: 20161116
  Transmission Date: 20170207
  Serious: No
  Sender: FDA-Public Use
  Company Number: US-GLAXOSMITHKLINE-US2016GSK082796

PATIENT
  Sex: Female

DRUGS (6)
  1. LORATADINE. [Suspect]
     Active Substance: LORATADINE
     Indication: PRODUCT USED FOR UNKNOWN INDICATION
  2. TRAMADOL. [Concomitant]
     Active Substance: TRAMADOL
     Indication: MIGRAINE
     Dosage: 50 MG, PRN
     Route: 048
  3. GABAPENTIN. [Concomitant]
     Active Substance: GABAPENTIN
     Dosage: 600 MG, QD
  4. SUMATRIPTAN SUCCINATE SOLUTION FOR INJECTION IN PRE-FILLED PEN [Suspect]
     Active Substance: SUMATRIPTAN SUCCINATE
     Indication: MIGRAINE
     Dosage: 6 MG, PRN
     Route: 058
  5. FLEXERIL [Concomitant]
     Active Substance: CYCLOBENZAPRINE HYDROCHLORIDE
     Indication: MIGRAINE
     Dosage: 10 MG, TID
     Route: 048
  6. FLUOXETINE [Concomitant]
     Active Substance: FLUOXETINE HYDROCHLORIDE
     Indication: DEPRESSION
     Dosage: 40 MG, QD

REACTIONS (5)
  - Drug hypersensitivity [Unknown]
  - Device issue [Unknown]
  - Drug dose omission [Unknown]
  - Product quality issue [Unknown]
  - Device malfunction [Unknown]
